FAERS Safety Report 5859532-1 (Version None)
Quarter: 2008Q3

REPORT INFORMATION
  Report Type: 
  Country: None (occurrence: None)
  Receive Date: 20080827
  Receipt Date: 20080822
  Transmission Date: 20090109
  Serious: Yes (Hospitalization)
  Sender: FDA-Public Use
  Company Number: A0744494A

PATIENT
  Age: 66 Year
  Sex: Male
  Weight: 121.4 kg

DRUGS (1)
  1. AVANDAMET [Suspect]
     Dates: end: 20070101

REACTIONS (3)
  - BLINDNESS [None]
  - CARDIAC FAILURE CONGESTIVE [None]
  - MYOCARDIAL INFARCTION [None]
